FAERS Safety Report 23853194 (Version 4)
Quarter: 2024Q2

REPORT INFORMATION
  Report Type: Report from Study
  Country: JP (occurrence: JP)
  Receive Date: 20240514
  Receipt Date: 20240626
  Transmission Date: 20240716
  Serious: Yes (Hospitalization)
  Sender: FDA-Public Use
  Company Number: JP-PFIZER INC-PV202400061851

PATIENT
  Age: 25 Year
  Sex: Male
  Weight: 68 kg

DRUGS (6)
  1. CIBINQO [Suspect]
     Active Substance: ABROCITINIB
     Indication: Dermatitis atopic
     Dosage: 100 MG, 1X/DAY
     Dates: start: 20231031, end: 20240507
  2. BEPOTASTINE BESYLATE [Concomitant]
     Active Substance: BEPOTASTINE BESYLATE
     Indication: Dermatitis atopic
     Dosage: 20 MG, DAILY
     Route: 048
     Dates: start: 20230823
  3. GLYCOSAMINOGLYCANS [Concomitant]
     Active Substance: GLYCOSAMINOGLYCANS
     Indication: Dermatitis atopic
     Dosage: 10 G, DAILY
     Route: 061
     Dates: start: 20230823
  4. LOCOID [Concomitant]
     Active Substance: HYDROCORTISONE BUTYRATE
     Indication: Dermatitis atopic
     Dosage: 2 G, DAILY
     Route: 061
     Dates: start: 20230823
  5. CYCLOSERINE [Concomitant]
     Active Substance: CYCLOSERINE
     Indication: Dermatitis atopic
     Dosage: 5 G, DAILY
     Route: 061
     Dates: start: 20230823
  6. PARAFFIN [Concomitant]
     Active Substance: PARAFFIN
     Indication: Dermatitis atopic
     Dosage: ADMIXTURE
     Route: 061
     Dates: start: 20230823

REACTIONS (1)
  - Cellulitis [Recovered/Resolved]

NARRATIVE: CASE EVENT DATE: 20240508
